FAERS Safety Report 6644947-4 (Version None)
Quarter: 2010Q1

REPORT INFORMATION
  Report Type: 
  Country: None (occurrence: None)
  Receive Date: 20100322
  Receipt Date: 20100310
  Transmission Date: 20100710
  Serious: Yes (Other)
  Sender: FDA-Public Use
  Company Number: PHHY2010CN14768

PATIENT

DRUGS (2)
  1. FEMARA [Suspect]
     Indication: BREAST CANCER
     Dosage: 2.5 MG, QD
     Route: 048
     Dates: start: 20090101
  2. ZOMETA [Suspect]
     Indication: BREAST CANCER
     Dosage: 4 MG IN EVERY 4 WEEKS
     Route: 042

REACTIONS (2)
  - CATARACT [None]
  - OCULAR HYPERTENSION [None]
